FAERS Safety Report 8825085 (Version 2)
Quarter: 2013Q2

REPORT INFORMATION
  Report Type: Spontaneous
  Country: JP (occurrence: JP)
  Receive Date: 20121004
  Receipt Date: 20130502
  Transmission Date: 20140414
  Serious: Yes (Death, Hospitalization)
  Sender: FDA-Public Use
  Company Number: JP-JNJFOC-20120700963

PATIENT
  Age: 78 Year
  Sex: Male
  Weight: 40 kg

DRUGS (16)
  1. RISPERIDONE [Suspect]
     Indication: PRODUCT USED FOR UNKNOWN INDICATION
     Route: 048
  2. DOPS [Concomitant]
     Indication: PROCEDURAL HYPOTENSION
     Route: 048
     Dates: start: 20120618, end: 20120627
  3. FOSRENOL [Concomitant]
     Indication: BLOOD PHOSPHORUS INCREASED
     Route: 048
     Dates: start: 20120525, end: 20120627
  4. CELTECT [Concomitant]
     Indication: PRURITUS
     Route: 048
     Dates: start: 20120530, end: 20120627
  5. PLAVIX [Concomitant]
     Indication: ANGINA PECTORIS
     Route: 048
     Dates: start: 20120618
  6. PHOSBLOCK [Concomitant]
     Indication: BLOOD PHOSPHORUS INCREASED
     Route: 048
     Dates: start: 20120620, end: 20120626
  7. REMITCH [Concomitant]
     Indication: PRURITUS
     Route: 048
     Dates: start: 20120309, end: 20120628
  8. AMIODARONE HYDROCHLORIDE [Concomitant]
     Indication: VENTRICULAR TACHYCARDIA
     Route: 048
     Dates: start: 20120125, end: 20120708
  9. METLIGINE [Concomitant]
     Indication: PROCEDURAL HYPOTENSION
     Route: 048
     Dates: start: 20120105, end: 20120708
  10. MAGLAX [Concomitant]
     Indication: CONSTIPATION
     Route: 048
     Dates: start: 20111121, end: 20120708
  11. MYSLEE [Concomitant]
     Indication: INSOMNIA
     Route: 048
     Dates: start: 20111121, end: 20120708
  12. THYRADIN S [Concomitant]
     Indication: HYPOTHYROIDISM
     Route: 048
     Dates: start: 20111017, end: 20120708
  13. ARTIST [Concomitant]
     Indication: CARDIAC FAILURE CHRONIC
     Route: 048
     Dates: start: 20101108, end: 20120708
  14. LASIX [Concomitant]
     Indication: CARDIAC FAILURE CHRONIC
     Route: 048
     Dates: start: 20101108, end: 20120708
  15. BAYASPIRIN [Concomitant]
     Indication: MYOCARDIAL INFARCTION
     Route: 048
     Dates: start: 20101108, end: 20120708
  16. SULBACTAM SODIUM/AMPICILLIN SODIUM [Concomitant]
     Indication: PNEUMONIA
     Route: 041
     Dates: start: 20120622, end: 20120628

REACTIONS (2)
  - Sepsis [Fatal]
  - Pneumonia [Unknown]
